FAERS Safety Report 6908528-7 (Version None)
Quarter: 2010Q3

REPORT INFORMATION
  Report Type: 
  Country: None (occurrence: None)
  Receive Date: 20100805
  Receipt Date: 20100723
  Transmission Date: 20110219
  Serious: Yes (Hospitalization)
  Sender: FDA-Public Use
  Company Number: JP-ELI_LILLY_AND_COMPANY-JP201006002658

PATIENT
  Sex: Male
  Weight: 63 kg

DRUGS (6)
  1. ZYPREXA [Suspect]
     Indication: SCHIZOPHRENIA
     Dosage: 0.5 G, 2/D
     Route: 048
     Dates: start: 20060901, end: 20100608
  2. ASPIRIN [Concomitant]
     Indication: SCHIZOPHRENIA
     Dosage: 100 MG, DAILY (1/D)
     Route: 048
     Dates: start: 20060901, end: 20100608
  3. DIOVAN [Concomitant]
     Indication: SCHIZOPHRENIA
     Dosage: 40 MG, 2/D
     Route: 048
     Dates: start: 20060901, end: 20100608
  4. CLONAZEPAM [Concomitant]
     Indication: SCHIZOPHRENIA
     Dosage: 1 MG, 3/D
     Route: 048
     Dates: start: 20060901, end: 20100608
  5. LENDORMIN [Concomitant]
     Indication: SCHIZOPHRENIA
     Dosage: 0.25 MG, DAILY (1/D)
     Route: 048
     Dates: start: 20060901, end: 20100608
  6. ZYRTEC [Concomitant]
     Indication: SCHIZOPHRENIA
     Dosage: 10 MG, DAILY (1/D)
     Route: 048
     Dates: start: 20060901, end: 20100608

REACTIONS (3)
  - NEUROLEPTIC MALIGNANT SYNDROME [None]
  - RENAL FAILURE ACUTE [None]
  - STATUS EPILEPTICUS [None]
